FAERS Safety Report 25879512 (Version 2)
Quarter: 2025Q4

REPORT INFORMATION
  Report Type: Spontaneous
  Country: US (occurrence: US)
  Receive Date: 20251003
  Receipt Date: 20251009
  Transmission Date: 20260118
  Serious: Yes (Hospitalization)
  Sender: RIGEL PHARMACEUTICALS
  Company Number: US-RIGEL Pharmaceuticals, INC-20250900197

PATIENT
  Sex: Male

DRUGS (1)
  1. GAVRETO [Suspect]
     Active Substance: PRALSETINIB
     Indication: Head and neck cancer
     Dosage: 100 MG, QD
     Route: 048

REACTIONS (6)
  - Hospitalisation [Unknown]
  - Fall [Unknown]
  - Rib fracture [Unknown]
  - Haemorrhage [Unknown]
  - Product prescribing issue [Unknown]
  - Off label use [Unknown]
